FAERS Safety Report 21385508 (Version 13)
Quarter: 2022Q4

REPORT INFORMATION
  Report Type: Report from Study
  Country: CH (occurrence: CH)
  Receive Date: 20220928
  Receipt Date: 20221220
  Transmission Date: 20230112
  Serious: Yes (Life-Threatening, Hospitalization)
  Sender: FDA-Public Use
  Company Number: CH-SA-SAC20220922001312

PATIENT
  Age: 89 Year
  Sex: Male
  Weight: 59.8 kg

DRUGS (41)
  1. ISATUXIMAB [Suspect]
     Active Substance: ISATUXIMAB
     Indication: Plasma cell myeloma refractory
     Dosage: 10 MG/KG, QW
     Route: 065
     Dates: start: 20211207, end: 20211213
  2. ISATUXIMAB [Suspect]
     Active Substance: ISATUXIMAB
     Dosage: 670 MG, QW
     Route: 065
     Dates: start: 20211221, end: 20220124
  3. ISATUXIMAB [Suspect]
     Active Substance: ISATUXIMAB
     Dosage: 670 MG, BIW
     Route: 065
     Dates: start: 20220125, end: 20220221
  4. ISATUXIMAB [Suspect]
     Active Substance: ISATUXIMAB
     Dosage: 670 MG, BIW
     Route: 065
     Dates: start: 20220222, end: 20220321
  5. ISATUXIMAB [Suspect]
     Active Substance: ISATUXIMAB
     Dosage: 670 MG, BIW
     Route: 065
     Dates: start: 20220322, end: 20220501
  6. ISATUXIMAB [Suspect]
     Active Substance: ISATUXIMAB
     Dosage: 670 MG, BIW
     Route: 065
     Dates: start: 20220502, end: 20220530
  7. ISATUXIMAB [Suspect]
     Active Substance: ISATUXIMAB
     Dosage: 670 MG, BIW
     Route: 065
     Dates: start: 20220531, end: 20220627
  8. ISATUXIMAB [Suspect]
     Active Substance: ISATUXIMAB
     Dosage: 670 MG, BIW
     Route: 065
     Dates: start: 20220628, end: 20220725
  9. ISATUXIMAB [Suspect]
     Active Substance: ISATUXIMAB
     Dosage: 670 MG, BIW
     Route: 065
     Dates: start: 20220726, end: 20220905
  10. ISATUXIMAB [Suspect]
     Active Substance: ISATUXIMAB
     Dosage: 670 MG, BIW
     Route: 065
     Dates: start: 20220906, end: 20220920
  11. ISATUXIMAB [Suspect]
     Active Substance: ISATUXIMAB
     Dosage: 670 MG, BIW
     Dates: start: 20221103, end: 20221116
  12. ISATUXIMAB [Suspect]
     Active Substance: ISATUXIMAB
     Dosage: 670 MG, BIW
     Dates: start: 20221117
  13. DEXAMETHASONE [Suspect]
     Active Substance: DEXAMETHASONE
     Indication: Plasma cell myeloma refractory
     Dosage: 20 MG, QW
     Route: 065
     Dates: start: 20211207, end: 20211213
  14. DEXAMETHASONE [Suspect]
     Active Substance: DEXAMETHASONE
     Dosage: 12 MG, QW
     Route: 065
     Dates: start: 20211214, end: 20211220
  15. DEXAMETHASONE [Suspect]
     Active Substance: DEXAMETHASONE
     Dosage: 12 MG, QW
     Route: 065
     Dates: start: 20211221, end: 20220124
  16. DEXAMETHASONE [Suspect]
     Active Substance: DEXAMETHASONE
     Dosage: 12 MG, QW
     Route: 065
     Dates: start: 20220125, end: 20220207
  17. DEXAMETHASONE [Suspect]
     Active Substance: DEXAMETHASONE
     Dosage: 10 MG, QW
     Route: 065
     Dates: start: 20220208, end: 20220221
  18. DEXAMETHASONE [Suspect]
     Active Substance: DEXAMETHASONE
     Dosage: 10 MG, QW
     Route: 065
     Dates: start: 20220222, end: 20220321
  19. DEXAMETHASONE [Suspect]
     Active Substance: DEXAMETHASONE
     Dosage: 10 MG, QW
     Route: 065
     Dates: start: 20220322, end: 20220501
  20. DEXAMETHASONE [Suspect]
     Active Substance: DEXAMETHASONE
     Dosage: 10 MG, QW
     Route: 065
     Dates: start: 20220502, end: 20220530
  21. DEXAMETHASONE [Suspect]
     Active Substance: DEXAMETHASONE
     Dosage: 10 MG, BIW
     Dates: start: 20220531, end: 20220627
  22. DEXAMETHASONE [Suspect]
     Active Substance: DEXAMETHASONE
     Dosage: 10 MG, QW
     Route: 065
     Dates: start: 20220628, end: 20220725
  23. DEXAMETHASONE [Suspect]
     Active Substance: DEXAMETHASONE
     Dosage: 10 MG, QW
     Route: 065
     Dates: start: 20220726, end: 20220905
  24. DEXAMETHASONE [Suspect]
     Active Substance: DEXAMETHASONE
     Dosage: 10 MG, QW
     Route: 065
     Dates: start: 20220906, end: 20220920
  25. DEXAMETHASONE [Suspect]
     Active Substance: DEXAMETHASONE
     Dosage: 10 MG, QW
     Dates: start: 20221103, end: 20221116
  26. DEXAMETHASONE [Suspect]
     Active Substance: DEXAMETHASONE
     Dosage: 10 MG, QW
     Dates: start: 20221117
  27. ESOMEPRAZOLE [Concomitant]
     Active Substance: ESOMEPRAZOLE
     Indication: Nausea
     Dosage: UNK
     Dates: start: 20211110, end: 20221010
  28. ESOMEPRAZOLE [Concomitant]
     Active Substance: ESOMEPRAZOLE
     Indication: Gastritis
  29. ELIQUIS [Concomitant]
     Active Substance: APIXABAN
     Indication: Coronary artery disease
     Dosage: UNK
     Route: 065
     Dates: start: 2018, end: 20221011
  30. AMLODIPINE\PERINDOPRIL [Concomitant]
     Active Substance: AMLODIPINE\PERINDOPRIL
     Indication: Coronary artery disease
     Dosage: UNK
     Dates: start: 2018
  31. LEVOTHYROXINE [Concomitant]
     Active Substance: LEVOTHYROXINE
     Indication: Hypothyroidism
     Dosage: UNK
     Dates: start: 2018
  32. ALLOPURINOL [Concomitant]
     Active Substance: ALLOPURINOL
     Indication: Hyperuricaemia
     Dosage: UNK
     Dates: start: 2018
  33. HYDROMORPHONE [Concomitant]
     Active Substance: HYDROMORPHONE
     Indication: Thoracic vertebral fracture
     Dosage: UNK
     Dates: start: 2018
  34. TAMSULOSIN [Concomitant]
     Active Substance: TAMSULOSIN
     Indication: Prostatic obstruction
     Dosage: UNK
     Dates: start: 2021
  35. TORSEMIDE [Concomitant]
     Active Substance: TORSEMIDE
     Indication: Coronary artery disease
     Dosage: UNK
     Dates: start: 2013
  36. CHOLECALCIFEROL [Concomitant]
     Active Substance: CHOLECALCIFEROL
     Indication: Prophylaxis
     Dosage: UNK
     Dates: start: 2018
  37. BACTRIM [Concomitant]
     Active Substance: SULFAMETHOXAZOLE\TRIMETHOPRIM
     Indication: Coronary artery disease
     Dosage: UNK
     Dates: start: 20210702
  38. VALTREX [Concomitant]
     Active Substance: VALACYCLOVIR HYDROCHLORIDE
     Indication: Inguinal hernia
     Dosage: UNK
     Dates: start: 20210701
  39. HERBALS\PLANTAGO OVATA LEAF [Concomitant]
     Active Substance: HERBALS\PLANTAGO OVATA LEAF
     Dosage: UNK
     Route: 065
     Dates: start: 20220531, end: 20220710
  40. PRIVIGEN [Concomitant]
     Active Substance: HUMAN IMMUNOGLOBULIN G
     Dosage: UNK
     Route: 065
     Dates: start: 20220329
  41. KCL RETARD SLOW K [Concomitant]
     Indication: Cystitis
     Dosage: UNK
     Route: 065
     Dates: start: 20220924

REACTIONS (5)
  - Upper gastrointestinal haemorrhage [Recovered/Resolved]
  - Cystitis [Recovered/Resolved]
  - Enterocolitis infectious [Recovered/Resolved]
  - Malaise [Recovered/Resolved]
  - Arthritis [Not Recovered/Not Resolved]

NARRATIVE: CASE EVENT DATE: 20220918
